FAERS Safety Report 7875584-1 (Version None)
Quarter: 2011Q4

REPORT INFORMATION
  Report Type: 
  Country: None (occurrence: None)
  Receive Date: 20111031
  Receipt Date: 20111017
  Transmission Date: 20120403
  Serious: Yes (Other)
  Sender: FDA-Public Use
  Company Number: US-ELI_LILLY_AND_COMPANY-US201110004665

PATIENT
  Age: 74 Year
  Sex: Female

DRUGS (2)
  1. FORTEO [Suspect]
     Dosage: UNK
     Dates: start: 20111017
  2. FORTEO [Suspect]
     Dosage: UNK
     Dates: end: 20110926

REACTIONS (2)
  - OEDEMA PERIPHERAL [None]
  - HIP ARTHROPLASTY [None]
